FAERS Safety Report 10557365 (Version 3)
Quarter: 2014Q4

REPORT INFORMATION
  Report Type: Spontaneous
  Country: JP (occurrence: JP)
  Receive Date: 20141031
  Receipt Date: 20141114
  Transmission Date: 20150529
  Serious: Yes (Life-Threatening, Hospitalization, Other)
  Sender: FDA-Public Use
  Company Number: JP-ELI_LILLY_AND_COMPANY-JP201410009430

PATIENT
  Age: 69 Year
  Sex: Female
  Weight: 55 kg

DRUGS (2)
  1. SEDIEL [Suspect]
     Active Substance: TANDOSPIRONE
     Indication: DEPRESSIVE SYMPTOM
     Dosage: 20 MG, QD
     Route: 048
     Dates: start: 20140905, end: 20140907
  2. ZYPREXA [Suspect]
     Active Substance: OLANZAPINE
     Indication: SCHIZOPHRENIA
     Dosage: 20 MG, QD
     Route: 048
     Dates: start: 20130401, end: 20140907

REACTIONS (4)
  - Brain oedema [Recovered/Resolved]
  - Rhabdomyolysis [Recovered/Resolved]
  - Water intoxication [Recovered/Resolved]
  - Polydipsia psychogenic [Unknown]

NARRATIVE: CASE EVENT DATE: 20140908
